FAERS Safety Report 16479947 (Version 1)
Quarter: 2019Q2

REPORT INFORMATION
  Report Type: Report from Study
  Country: None (occurrence: RO)
  Receive Date: 20190626
  Receipt Date: 20190626
  Transmission Date: 20190711
  Serious: Yes (Hospitalization, Other)
  Sender: FDA-Public Use
  Company Number: RO-ABBVIE-19K-135-2832924-00

PATIENT
  Age: 40 Year
  Sex: Female

DRUGS (1)
  1. HUMIRA [Suspect]
     Active Substance: ADALIMUMAB
     Indication: CROHN^S DISEASE
     Route: 058
     Dates: start: 20110515

REACTIONS (17)
  - Spinal osteoarthritis [Unknown]
  - Neck pain [Recovering/Resolving]
  - Blood pressure increased [Recovering/Resolving]
  - Eye injury [Recovered/Resolved]
  - Loss of consciousness [Recovered/Resolved]
  - Nervous system disorder [Recovering/Resolving]
  - Increased appetite [Not Recovered/Not Resolved]
  - Insomnia [Recovering/Resolving]
  - Agitation [Recovering/Resolving]
  - Breast pain [Not Recovered/Not Resolved]
  - Large intestinal ulcer [Not Recovered/Not Resolved]
  - Palpitations [Recovering/Resolving]
  - Fall [Recovered/Resolved]
  - Breast pain [Recovered/Resolved]
  - Weight increased [Not Recovered/Not Resolved]
  - Panic reaction [Recovering/Resolving]
  - Mouth haemorrhage [Recovered/Resolved]

NARRATIVE: CASE EVENT DATE: 2018
